FAERS Safety Report 19700961 (Version 1)
Quarter: 2021Q3

REPORT INFORMATION
  Report Type: Report from Study
  Country: IE (occurrence: IE)
  Receive Date: 20210813
  Receipt Date: 20210813
  Transmission Date: 20211014
  Serious: Yes (Other)
  Sender: FDA-Public Use
  Company Number: IE-TEVA-2021-IE-1929713

PATIENT
  Sex: Female

DRUGS (10)
  1. AJOVY [Suspect]
     Active Substance: FREMANEZUMAB-VFRM
     Indication: MIGRAINE
     Dosage: 225MG, ONCE MONTHLY
     Route: 058
     Dates: start: 20201217, end: 2021
  2. VITAMIN D [Concomitant]
     Active Substance: VITAMIN D NOS
  3. NEXIUM 20 MG [Concomitant]
     Dosage: 20 MILLIGRAM DAILY;
  4. OXINORM [Concomitant]
  5. LAMETOL 100MG [Concomitant]
     Dosage: 200 MILLIGRAM DAILY;
  6. ACTIVELLE [Concomitant]
     Active Substance: ESTRADIOL\NORETHINDRONE ACETATE
  7. ATORVASTATIN 10MG [Concomitant]
     Active Substance: ATORVASTATIN
     Dosage: 10 MILLIGRAM DAILY;
  8. OXICONSINTIN [Concomitant]
  9. PROPANOLOL 40 MG [Concomitant]
     Active Substance: PROPRANOLOL HYDROCHLORIDE
     Dosage: 80 MILLIGRAM DAILY;
  10. BACLOFEN 10MG [Concomitant]
     Active Substance: BACLOFEN
     Dosage: 20 MILLIGRAM DAILY;

REACTIONS (2)
  - Lung neoplasm malignant [Not Recovered/Not Resolved]
  - Hepatic cancer [Not Recovered/Not Resolved]
